FAERS Safety Report 5991003-4 (Version None)
Quarter: 2008Q4

REPORT INFORMATION
  Report Type: 
  Country: None (occurrence: None)
  Receive Date: 20081211
  Receipt Date: 20080423
  Transmission Date: 20090506
  Serious: No
  Sender: FDA-Public Use
  Company Number: US-AMGEN-KDL272709

PATIENT
  Sex: Female

DRUGS (4)
  1. ENBREL [Suspect]
     Indication: JUVENILE ARTHRITIS
     Route: 058
     Dates: start: 19970901, end: 20080108
  2. ACTONEL [Concomitant]
  3. PROGESTERONE [Concomitant]
  4. UNKNOWN [Concomitant]

REACTIONS (3)
  - MALAISE [None]
  - RHEUMATOID ARTHRITIS [None]
  - THERAPEUTIC RESPONSE DECREASED [None]
